FAERS Safety Report 17359463 (Version 1)
Quarter: 2020Q1

REPORT INFORMATION
  Report Type: Spontaneous
  Country: SE (occurrence: SE)
  Receive Date: 20200203
  Receipt Date: 20200203
  Transmission Date: 20200409
  Serious: Yes (Hospitalization)
  Sender: FDA-Public Use
  Company Number: SE-ACCORD-171584

PATIENT
  Age: 72 Year
  Sex: Male

DRUGS (10)
  1. METFORMIN [Concomitant]
     Active Substance: METFORMIN HYDROCHLORIDE
  2. NITROLINGUAL [Concomitant]
     Active Substance: NITROGLYCERIN
  3. KALCIPOS-D [Concomitant]
     Active Substance: CALCIUM CARBONATE\CHOLECALCIFEROL
  4. ZOPICLONE [Concomitant]
     Active Substance: ZOPICLONE
  5. ATORVASTATIN/ATORVASTATIN CALCIUM [Suspect]
     Active Substance: ATORVASTATIN CALCIUM
     Indication: CORONARY ARTERY DISEASE
     Dosage: 80 MG X1
     Route: 048
     Dates: start: 20181024, end: 20190206
  6. TROMBYL [Concomitant]
     Active Substance: ASPIRIN
  7. ENALAPRIL [Concomitant]
     Active Substance: ENALAPRIL
  8. BISOPROLOL [Concomitant]
     Active Substance: BISOPROLOL
  9. OMEPRAZOLE. [Concomitant]
     Active Substance: OMEPRAZOLE
  10. BRILIQUE [Concomitant]
     Active Substance: TICAGRELOR

REACTIONS (3)
  - Hepatic failure [Recovered/Resolved with Sequelae]
  - Jaundice cholestatic [Recovered/Resolved with Sequelae]
  - Renal failure [Recovered/Resolved with Sequelae]

NARRATIVE: CASE EVENT DATE: 20190201
